FAERS Safety Report 9248407 (Version 1)
Quarter: 2013Q1

REPORT INFORMATION
  Report Type: Spontaneous
  Country: US (occurrence: None)
  Receive Date: 20130305
  Receipt Date: 20130305
  Transmission Date: 20140127
  Serious: Yes (Other)
  Sender: FDA-Public Use
  Company Number: 163-21880-12101321

PATIENT
  Age: 73 Year
  Sex: Female
  Weight: 69.85 kg

DRUGS (9)
  1. REVLIMID [Suspect]
     Indication: PLASMA CELL MYELOMA
     Dosage: 10 MG, 14 IN 14 D, PO
     Route: 048
     Dates: start: 20120724
  2. ACYCLOVIR (ACICLOVIR) [Concomitant]
  3. CALTRATE WITH VITAMIN D [Concomitant]
  4. DEXAMETHASONE (DEXAMETHASONE) [Concomitant]
  5. GLYBURIDE (GLIBENCLAMIDE) [Concomitant]
  6. LISINOPRIL(LISINOPRIL) [Concomitant]
  7. OMEPRAZOLE(OMEPRAZOLE) [Concomitant]
  8. SIMVASTATIN (SIMVASTATIN) [Concomitant]
  9. VELCADE [Concomitant]

REACTIONS (1)
  - Diarrhoea [None]
